FAERS Safety Report 4916932-1 (Version None)
Quarter: 2006Q1

REPORT INFORMATION
  Report Type: 
  Country: None (occurrence: None)
  Receive Date: 20060221
  Receipt Date: 20060207
  Transmission Date: 20060701
  Serious: Yes (Other)
  Sender: FDA-Public Use
  Company Number: PHNU2006DE00839

PATIENT
  Sex: Male

DRUGS (4)
  1. ESIDRIX [Suspect]
  2. MARCUMAR [Concomitant]
  3. METOPROLOL [Concomitant]
  4. SORTIS [Concomitant]

REACTIONS (1)
  - PLEURISY [None]
